FAERS Safety Report 25356036 (Version 1)
Quarter: 2025Q2

REPORT INFORMATION
  Report Type: Spontaneous
  Country: AU (occurrence: AU)
  Receive Date: 20250525
  Receipt Date: 20250525
  Transmission Date: 20250717
  Serious: Yes (Death)
  Sender: BEIGENE
  Company Number: AU-BEIGENE-BGN-2025-008291

PATIENT
  Age: 70 Year

DRUGS (2)
  1. BRUKINSA [Suspect]
     Active Substance: ZANUBRUTINIB
     Indication: Mantle cell lymphoma
  2. BRUKINSA [Suspect]
     Active Substance: ZANUBRUTINIB

REACTIONS (1)
  - Cardiac death [Fatal]
